FAERS Safety Report 9393591 (Version 1)
Quarter: 2013Q3

REPORT INFORMATION
  Report Type: Spontaneous
  Country: US (occurrence: US)
  Receive Date: 20130710
  Receipt Date: 20130710
  Transmission Date: 20140515
  Serious: Yes (Other)
  Sender: FDA-Public Use
  Company Number: US-GLAXOSMITHKLINE-A1031425A

PATIENT
  Age: 71 Year
  Sex: Female

DRUGS (2)
  1. ZANTAC [Suspect]
     Indication: PRODUCT USED FOR UNKNOWN INDICATION
     Dosage: 150MG PER DAY
     Route: 048
     Dates: start: 20130628
  2. NONE [Concomitant]

REACTIONS (1)
  - Postmenopausal haemorrhage [Unknown]
